FAERS Safety Report 9219552 (Version 2)
Quarter: 2013Q2

REPORT INFORMATION
  Report Type: Spontaneous
  Country: US (occurrence: US)
  Receive Date: 20130409
  Receipt Date: 20130527
  Transmission Date: 20140414
  Serious: No
  Sender: FDA-Public Use
  Company Number: US-009507513-1304USA003699

PATIENT
  Age: 29 Year
  Sex: Female

DRUGS (1)
  1. NASONEX [Suspect]
     Dosage: UNK
     Route: 055
     Dates: start: 2011

REACTIONS (1)
  - Macular fibrosis [Unknown]
